FAERS Safety Report 7600383-5 (Version None)
Quarter: 2011Q3

REPORT INFORMATION
  Report Type: 
  Country: None (occurrence: None)
  Receive Date: 20110711
  Receipt Date: 20110629
  Transmission Date: 20111222
  Serious: Yes (Hospitalization, Other)
  Sender: FDA-Public Use
  Company Number: US-ELI_LILLY_AND_COMPANY-US201008007248

PATIENT
  Sex: Female

DRUGS (17)
  1. FORTEO [Suspect]
     Dosage: 20 UG, QD
  2. AMARYL [Concomitant]
  3. FORTEO [Suspect]
     Dosage: 20 UG, QD
  4. GLUCOPHAGE [Concomitant]
  5. ASPIRIN [Concomitant]
  6. CRESTOR [Concomitant]
  7. FOSAMAX [Concomitant]
     Dosage: UNK, WEEKLY (1/W)
  8. PROCARDIA [Concomitant]
  9. PRINIVIL [Concomitant]
  10. CALCIUM CARBONATE [Concomitant]
     Dosage: 500 MG, UNK
  11. TYLENOL (CAPLET) [Concomitant]
  12. HYDROCHLOROTHIAZIDE [Concomitant]
  13. VITAMIN D [Concomitant]
  14. FORTEO [Suspect]
     Indication: OSTEOPOROSIS
     Dosage: 20 UG, DAILY (1/D)
     Dates: start: 20100518
  15. LUMIGAN [Concomitant]
  16. ATENOLOL [Concomitant]
  17. NIACIN [Concomitant]

REACTIONS (5)
  - AORTIC ANEURYSM [None]
  - LIMB DISCOMFORT [None]
  - MOBILITY DECREASED [None]
  - ARTHRITIS [None]
  - MUSCULAR WEAKNESS [None]
